FAERS Safety Report 25659758 (Version 1)
Quarter: 2025Q3

REPORT INFORMATION
  Report Type: Spontaneous
  Country: US (occurrence: US)
  Receive Date: 20250808
  Receipt Date: 20250808
  Transmission Date: 20251020
  Serious: Yes (Death, Other)
  Sender: DR REDDYS
  Company Number: US-DRL-USA-USA/2025/08/011863

PATIENT
  Age: 39 Year
  Sex: Male

DRUGS (4)
  1. DOXORUBICIN [Suspect]
     Active Substance: DOXORUBICIN
     Indication: Kaposi sarcoma inflammatory cytokine syndrome
  2. RITUXIMAB [Concomitant]
     Active Substance: RITUXIMAB
     Indication: Kaposi sarcoma inflammatory cytokine syndrome
  3. TOCILIZUMAB [Concomitant]
     Active Substance: TOCILIZUMAB
     Indication: Kaposi sarcoma inflammatory cytokine syndrome
  4. DEXAMETHASONE [Concomitant]
     Active Substance: DEXAMETHASONE
     Indication: Haemophagocytic lymphohistiocytosis

REACTIONS (1)
  - Drug ineffective [Fatal]
